FAERS Safety Report 4413299-2 (Version None)
Quarter: 2004Q3

REPORT INFORMATION
  Report Type: 
  Country: None (occurrence: None)
  Receive Date: 20040802
  Receipt Date: 20040712
  Transmission Date: 20050211
  Serious: Yes (Death, Other)
  Sender: FDA-Public Use
  Company Number: PHNU2004PL02468

PATIENT
  Age: 20 Year
  Sex: Female
  Weight: 72 kg

DRUGS (11)
  1. TEGRETOL [Suspect]
     Indication: TEMPORAL LOBE EPILEPSY
     Dosage: 100 MG, BID
     Route: 048
     Dates: start: 19960101, end: 19970101
  2. TEGRETOL [Suspect]
     Dosage: 200 MG, BID
     Dates: start: 19970101, end: 20000227
  3. TEGRETOL [Suspect]
     Dosage: 400 MG, BID
     Dates: start: 20000228
  4. TEGRETOL [Suspect]
     Dosage: 200 MG, BID
     Dates: start: 20000619, end: 20020918
  5. TEGRETOL [Suspect]
     Dosage: 100 MG, BID
     Dates: start: 20020919, end: 20021202
  6. TEGRETOL [Suspect]
     Dosage: 200 MG, BID
     Dates: start: 20021203
  7. TEGRETOL [Suspect]
     Dosage: 200 MG, BID
  8. TEGRETOL [Suspect]
     Dosage: 400 MG, BID
     Dates: start: 20000501
  9. TEGRETOL [Suspect]
     Dosage: 200 MG, BID
     Dates: end: 20020301
  10. TEGRETOL [Suspect]
     Dosage: 400 MG, BID
     Dates: start: 20030301
  11. LEVOTHYROXINE SODIUM [Concomitant]
     Indication: THYROID DISORDER
     Dosage: 12.5 MG
     Dates: start: 19930101

REACTIONS (37)
  - AMNESIA [None]
  - ANXIETY [None]
  - ASTHENIA [None]
  - ATELECTASIS [None]
  - AURA [None]
  - BALANCE DISORDER [None]
  - BLOOD PRESSURE DECREASED [None]
  - BRAIN OEDEMA [None]
  - COGNITIVE DISORDER [None]
  - CONDITION AGGRAVATED [None]
  - CONFUSIONAL STATE [None]
  - CONVULSION [None]
  - DEATH [None]
  - DEPRESSED LEVEL OF CONSCIOUSNESS [None]
  - DISCOMFORT [None]
  - ECCHYMOSIS [None]
  - ELECTROENCEPHALOGRAM ABNORMAL [None]
  - EMPHYSEMA [None]
  - EXTRAVASATION [None]
  - FATIGUE [None]
  - FEELING COLD [None]
  - HEADACHE [None]
  - LABORATORY TEST ABNORMAL [None]
  - LEARNING DISORDER [None]
  - LOSS OF CONSCIOUSNESS [None]
  - MEMORY IMPAIRMENT [None]
  - PERIPHERAL COLDNESS [None]
  - PETIT MAL EPILEPSY [None]
  - PROSTRATION [None]
  - PULMONARY OEDEMA [None]
  - SOCIAL AVOIDANT BEHAVIOUR [None]
  - SOMNOLENCE [None]
  - SPEECH DISORDER [None]
  - SYNCOPE [None]
  - THINKING ABNORMAL [None]
  - TINNITUS [None]
  - VERTIGO [None]
